FAERS Safety Report 7594113-3 (Version None)
Quarter: 2011Q3

REPORT INFORMATION
  Report Type: 
  Country: None (occurrence: None)
  Receive Date: 20110706
  Receipt Date: 20110701
  Transmission Date: 20111222
  Serious: Yes (Other)
  Sender: FDA-Public Use
  Company Number: GB-ABBOTT-11P-167-0836146-00

PATIENT
  Sex: Female
  Weight: 98 kg

DRUGS (2)
  1. HUMIRA [Suspect]
     Indication: RHEUMATOID ARTHRITIS
     Route: 058
     Dates: start: 20080214, end: 20090315
  2. HUMIRA [Suspect]

REACTIONS (1)
  - ABORTION SPONTANEOUS [None]
